FAERS Safety Report 15229920 (Version 2)
Quarter: 2018Q3

REPORT INFORMATION
  Report Type: Report from Study
  Country: ES (occurrence: ES)
  Receive Date: 20180802
  Receipt Date: 20180803
  Transmission Date: 20181010
  Serious: Yes (Life-Threatening, Hospitalization)
  Sender: FDA-Public Use
  Company Number: ES-TEVA-2018-ES-933078

PATIENT
  Age: 75 Year
  Sex: Male

DRUGS (7)
  1. PIPERACILLIN AND TAZOBACTAM [Suspect]
     Active Substance: PIPERACILLIN SODIUM\TAZOBACTAM SODIUM
     Dosage: 4 GR EVERY 6 HOURS
     Route: 042
     Dates: start: 20161113, end: 20161118
  2. PANTOPRAZOL [Concomitant]
     Active Substance: PANTOPRAZOLE SODIUM
     Dates: start: 20161113
  3. LEVOFLOXACINO (2791A) [Suspect]
     Active Substance: LEVOFLOXACIN
     Dosage: 750 MILLIGRAM DAILY;
     Route: 042
     Dates: start: 20161113, end: 20161118
  4. PROPOFOL. [Concomitant]
     Active Substance: PROPOFOL
     Dates: start: 20161113
  5. FENTANILO [Concomitant]
     Active Substance: FENTANYL
     Route: 042
     Dates: start: 20161113
  6. FUROSEMIDA [Concomitant]
     Active Substance: FUROSEMIDE
     Route: 042
     Dates: start: 20161113
  7. METAMIZOL (111A) [Suspect]
     Active Substance: METAMIZOL SODIUM
     Indication: PYREXIA
     Dosage: 2 GR EVERY 8 HOURS
     Route: 042
     Dates: start: 20161116, end: 20161119

REACTIONS (1)
  - Acute generalised exanthematous pustulosis [Recovered/Resolved]

NARRATIVE: CASE EVENT DATE: 20161117
